FAERS Safety Report 21314384 (Version 1)
Quarter: 2022Q3

REPORT INFORMATION
  Report Type: Spontaneous
  Country: US (occurrence: None)
  Receive Date: 20220909
  Receipt Date: 20220909
  Transmission Date: 20221027
  Serious: No
  Sender: FDA-Public Use
  Company Number: None

PATIENT
  Age: 58 Year
  Sex: Female
  Weight: 61.69 kg

DRUGS (1)
  1. ALECENSA [Suspect]
     Active Substance: ALECTINIB HYDROCHLORIDE
     Indication: Lung neoplasm malignant
     Dosage: 4 CAPSULES BID ORALLY?
     Route: 048
     Dates: start: 20220713

REACTIONS (5)
  - Constipation [None]
  - Muscle spasms [None]
  - Pain [None]
  - Pain [None]
  - Anaemia [None]

NARRATIVE: CASE EVENT DATE: 20220907
